FAERS Safety Report 7854156-9 (Version None)
Quarter: 2011Q4

REPORT INFORMATION
  Report Type: 
  Country: None (occurrence: None)
  Receive Date: 20111026
  Receipt Date: 20100930
  Transmission Date: 20120403
  Serious: No
  Sender: FDA-Public Use
  Company Number: US-BRISTOL-MYERS SQUIBB COMPANY-15272271

PATIENT
  Age: 38 Year
  Sex: Female
  Weight: 157 kg

DRUGS (1)
  1. BUSPAR [Suspect]

REACTIONS (3)
  - DRUG INEFFECTIVE [None]
  - WEIGHT INCREASED [None]
  - PANIC ATTACK [None]
